FAERS Safety Report 8352146-3 (Version None)
Quarter: 2012Q2

REPORT INFORMATION
  Report Type: 
  Country: None (occurrence: None)
  Receive Date: 20120509
  Receipt Date: 20120503
  Transmission Date: 20120825
  Serious: Yes (Other)
  Sender: FDA-Public Use
  Company Number: 2012MA005696

PATIENT
  Age: 51 Year
  Sex: Male

DRUGS (2)
  1. CISPLATIN [Concomitant]
  2. GEMCITABINE HYDROCHLORIDE [Suspect]
     Indication: LUNG NEOPLASM MALIGNANT
     Dosage: 1200 MG/MM^2;4 CYCLES; IV
     Route: 042

REACTIONS (10)
  - PAIN IN EXTREMITY [None]
  - FEMORAL ARTERIAL STENOSIS [None]
  - PNEUMOTHORAX [None]
  - ILIAC ARTERY STENOSIS [None]
  - NEUTROPENIA [None]
  - THROMBOCYTOPENIA [None]
  - PLANTAR ERYTHEMA [None]
  - TOXICITY TO VARIOUS AGENTS [None]
  - ARTERIAL STENOSIS LIMB [None]
  - LEG AMPUTATION [None]
